FAERS Safety Report 14771976 (Version 3)
Quarter: 2019Q2

REPORT INFORMATION
  Report Type: Report from Study
  Country: None (occurrence: NL)
  Receive Date: 20180417
  Receipt Date: 20190418
  Transmission Date: 20190711
  Serious: Yes (Hospitalization)
  Sender: FDA-Public Use
  Company Number: NL-ABBVIE-18K-114-2261835-00

PATIENT
  Sex: Female
  Weight: 55.5 kg

DRUGS (2)
  1. DUODOPA [Suspect]
     Active Substance: CARBIDOPA\LEVODOPA
     Indication: PARKINSON^S DISEASE
     Dosage: MD 20, CD 2.9, ED 3, 16 HOUR THERAPY
     Route: 050
     Dates: start: 20150909
  2. MACROGOL [Concomitant]
     Active Substance: POLYETHYLENE GLYCOLS
     Indication: ABNORMAL FAECES
     Route: 065

REACTIONS (11)
  - Stoma site erythema [Recovering/Resolving]
  - Disorientation [Not Recovered/Not Resolved]
  - Cognitive disorder [Not Recovered/Not Resolved]
  - Abnormal dreams [Not Recovered/Not Resolved]
  - Hip fracture [Recovered/Resolved]
  - Fibroma [Not Recovered/Not Resolved]
  - Confusional state [Not Recovered/Not Resolved]
  - Freezing phenomenon [Not Recovered/Not Resolved]
  - Abnormal faeces [Recovered/Resolved]
  - Dementia [Not Recovered/Not Resolved]
  - Stoma site discharge [Not Recovered/Not Resolved]
